FAERS Safety Report 11770766 (Version 1)
Quarter: 2015Q4

REPORT INFORMATION
  Report Type: Spontaneous
  Country: US (occurrence: None)
  Receive Date: 20151123
  Receipt Date: 20151123
  Transmission Date: 20160304
  Serious: No
  Sender: FDA-Public Use
  Company Number: US-MDT-ADR-2015-02220

PATIENT
  Age: 41 Year
  Sex: Female

DRUGS (2)
  1. BACLOFEN INTRATHECAL [Suspect]
     Active Substance: BACLOFEN
     Indication: PAIN
  2. BUPIVACAINE INTRATHECAL [Suspect]
     Active Substance: BUPIVACAINE

REACTIONS (3)
  - Medical device site pain [None]
  - Device signal detection issue [None]
  - Device malfunction [None]
